FAERS Safety Report 8379210-7 (Version None)
Quarter: 2012Q2

REPORT INFORMATION
  Report Type: 
  Country: None (occurrence: None)
  Receive Date: 20120523
  Receipt Date: 20120516
  Transmission Date: 20120825
  Serious: Yes (Other)
  Sender: FDA-Public Use
  Company Number: US-PURDUE-USA-2012-0086497

PATIENT
  Sex: Female
  Weight: 71.655 kg

DRUGS (10)
  1. NEXIUM [Concomitant]
     Indication: GASTRIC DISORDER
  2. DILAUDID [Suspect]
     Indication: ARTHRALGIA
     Dosage: 8 MG, DAILY
     Route: 048
  3. NEURONTIN [Suspect]
     Indication: PAIN
  4. DILAUDID [Suspect]
     Indication: BACK PAIN
     Dosage: 1 MG, TID
  5. NEURONTIN [Suspect]
     Indication: ARTHRALGIA
     Dosage: 100 MG, UNK
  6. FIBERCON [Suspect]
     Indication: CONSTIPATION
     Dosage: UNK, DAILY
     Route: 048
     Dates: start: 20120405, end: 20120405
  7. NEURONTIN [Suspect]
  8. CORTISONE ACETATE [Suspect]
     Indication: PRODUCT USED FOR UNKNOWN INDICATION
     Dosage: UNK
  9. NEURONTIN [Suspect]
     Indication: BACK PAIN
  10. DILAUDID [Suspect]
     Indication: PAIN

REACTIONS (19)
  - DYSGEUSIA [None]
  - DRUG HYPERSENSITIVITY [None]
  - DYSPEPSIA [None]
  - NAUSEA [None]
  - CONFUSIONAL STATE [None]
  - HEADACHE [None]
  - CONSTIPATION [None]
  - DRUG EFFECT DECREASED [None]
  - ARTHRALGIA [None]
  - RESPIRATORY ARREST [None]
  - DYSPNOEA [None]
  - PHARYNGEAL OEDEMA [None]
  - SWELLING FACE [None]
  - OESOPHAGEAL PAIN [None]
  - ARTHROPATHY [None]
  - REACTION TO DRUG EXCIPIENTS [None]
  - MALAISE [None]
  - ERYTHEMA [None]
  - PAIN [None]
